FAERS Safety Report 23890488 (Version 1)
Quarter: 2024Q2

REPORT INFORMATION
  Report Type: Spontaneous
  Country: US (occurrence: US)
  Receive Date: 20240523
  Receipt Date: 20240523
  Transmission Date: 20240716
  Serious: Yes (Other)
  Sender: FDA-Public Use
  Company Number: US-FreseniusKabi-FK202408141

PATIENT
  Age: 66 Year
  Sex: Male

DRUGS (3)
  1. PHENYLEPHRINE [Suspect]
     Active Substance: PHENYLEPHRINE HYDROCHLORIDE
     Indication: Blood loss anaemia
  2. VASOPRESSIN [Suspect]
     Active Substance: VASOPRESSIN
     Indication: Blood loss anaemia
  3. NOREPINEPHRINE [Suspect]
     Active Substance: NOREPINEPHRINE\NOREPINEPHRINE BITARTRATE
     Indication: Blood loss anaemia

REACTIONS (1)
  - Cardiomyopathy [Recovering/Resolving]
